FAERS Safety Report 6184257-5 (Version None)
Quarter: 2009Q2

REPORT INFORMATION
  Report Type: 
  Country: None (occurrence: None)
  Receive Date: 20090508
  Receipt Date: 20090427
  Transmission Date: 20091009
  Serious: Yes (Other)
  Sender: FDA-Public Use
  Company Number: US-PFIZER INC-2008098688

PATIENT
  Sex: Female
  Weight: 52.154 kg

DRUGS (4)
  1. XALATAN [Suspect]
     Indication: OPTIC NERVE DISORDER
     Dosage: 1 GTT, 1X/DAY
     Route: 047
     Dates: end: 20070717
  2. LISINOPRIL [Concomitant]
     Indication: HYPERTENSION
  3. VESICARE [Concomitant]
     Indication: HYPERTONIC BLADDER
  4. EVISTA [Concomitant]
     Indication: OSTEOPOROSIS

REACTIONS (1)
  - CATARACT OPERATION [None]
